FAERS Safety Report 5006916-X (Version None)
Quarter: 2006Q2

REPORT INFORMATION
  Report Type: 
  Country: None (occurrence: None)
  Receive Date: 20060517
  Receipt Date: 20060502
  Transmission Date: 20061013
  Serious: Yes (Life-Threatening, Hospitalization)
  Sender: FDA-Public Use
  Company Number: 29155

PATIENT
  Age: 85 Year
  Sex: Female

DRUGS (3)
  1. TAMBOCOR [Suspect]
     Indication: ATRIAL FIBRILLATION
     Dosage: 100-200 MG DAILY AS REQUIRED (100 MG, 1-2 TABLETS) DAILY ORAL
     Route: 048
     Dates: start: 20050101
  2. COROLIN [Concomitant]
  3. EMCONCOR [Concomitant]

REACTIONS (11)
  - CARDIAC FAILURE [None]
  - CHEST X-RAY ABNORMAL [None]
  - HAEMOGLOBIN DECREASED [None]
  - HIGH DENSITY LIPOPROTEIN DECREASED [None]
  - LOW DENSITY LIPOPROTEIN INCREASED [None]
  - MALAISE [None]
  - OVERDOSE [None]
  - PACING THRESHOLD INCREASED [None]
  - PLEURAL EFFUSION [None]
  - PNEUMONIA ASPIRATION [None]
  - VOMITING [None]
